FAERS Safety Report 19043099 (Version 1)
Quarter: 2021Q1

REPORT INFORMATION
  Report Type: Spontaneous
  Country: US (occurrence: US)
  Receive Date: 20210323
  Receipt Date: 20210323
  Transmission Date: 20210420
  Serious: No
  Sender: FDA-Public Use
  Company Number: US-ALLERGAN-2104703US

PATIENT

DRUGS (2)
  1. DURYSTA [Suspect]
     Active Substance: BIMATOPROST
     Indication: PRODUCT USED FOR UNKNOWN INDICATION
     Dosage: 0.01 MG, SINGLE
     Route: 031
     Dates: start: 20210111, end: 20210111
  2. DURYSTA [Suspect]
     Active Substance: BIMATOPROST
     Dosage: 0.01 MG, SINGLE
     Route: 031
     Dates: start: 20201224, end: 20201224

REACTIONS (1)
  - Intraocular pressure increased [Unknown]
